FAERS Safety Report 8915848 (Version 1)
Quarter: 2012Q4

REPORT INFORMATION
  Report Type: 
  Country: GR (occurrence: GR)
  Receive Date: 20121119
  Receipt Date: 20121119
  Transmission Date: 20130627
  Serious: Yes (Death)
  Sender: FDA-Public Use
  Company Number: GR-TEVA-369685ISR

PATIENT
  Age: 74 Year
  Sex: Male

DRUGS (3)
  1. BICALUTAMIDE [Suspect]
     Route: 048
  2. LHRH, 4-FLUORO ANTAGONIST [Suspect]
  3. ERYTHROPOIETIN [Concomitant]

REACTIONS (2)
  - Drug ineffective [Fatal]
  - Cerebral haematoma [Fatal]
